FAERS Safety Report 8134979-1 (Version None)
Quarter: 2012Q1

REPORT INFORMATION
  Report Type: 
  Country: None (occurrence: None)
  Receive Date: 20120214
  Receipt Date: 20120202
  Transmission Date: 20120608
  Serious: Yes (Hospitalization)
  Sender: FDA-Public Use
  Company Number: US-SANOFI-AVENTIS-2012SA007135

PATIENT
  Age: 48 Year
  Sex: Female

DRUGS (1)
  1. LANTUS [Suspect]
     Dosage: DOSE:21 UNIT(S)
     Route: 058

REACTIONS (3)
  - HYPOTENSION [None]
  - HYPONATRAEMIA [None]
  - ADRENAL INSUFFICIENCY [None]
